FAERS Safety Report 6964956-5 (Version None)
Quarter: 2010Q3

REPORT INFORMATION
  Report Type: 
  Country: None (occurrence: None)
  Receive Date: 20100901
  Receipt Date: 20100819
  Transmission Date: 20110219
  Serious: Yes (Death, Hospitalization)
  Sender: FDA-Public Use
  Company Number: 2009AC000180

PATIENT
  Age: 62 Year
  Sex: Male

DRUGS (27)
  1. DIGOXIN [Suspect]
     Dosage: 0.125 MG; QD; PO, 0.25 MG; QD; PO
     Route: 048
     Dates: start: 19990724
  2. ASPIRIN [Concomitant]
  3. PLAVIX [Concomitant]
  4. CRESTOR [Concomitant]
  5. TRICOR [Concomitant]
  6. TOPROL-XL [Concomitant]
  7. COUMADIN [Concomitant]
  8. LASIX [Concomitant]
  9. ACTOS [Concomitant]
  10. PLAVIX [Concomitant]
  11. METFORMIN [Concomitant]
  12. GLUCOPHAGE [Concomitant]
  13. PROTONIX [Concomitant]
  14. DIOBAN/HCT [Concomitant]
  15. PRAVACHOL [Concomitant]
  16. MICARDIS [Concomitant]
  17. TRICOR [Concomitant]
  18. ADVAIR DISKUS 100/50 [Concomitant]
  19. ALBUTEROL [Concomitant]
  20. VANCOMYCIN [Concomitant]
  21. NEXIUM [Concomitant]
  22. PROVENTIL [Concomitant]
  23. CARDIZEM [Concomitant]
  24. LASIX [Concomitant]
  25. PLAVIX [Concomitant]
  26. ASPIRIN [Concomitant]
  27. CRESTOR [Concomitant]

REACTIONS (37)
  - ABDOMINAL PAIN UPPER [None]
  - ACUTE MYOCARDIAL INFARCTION [None]
  - ANAEMIA [None]
  - ANGINA UNSTABLE [None]
  - ARRHYTHMIA [None]
  - ARTERIOSCLEROSIS [None]
  - ASTHENIA [None]
  - ATRIAL FIBRILLATION [None]
  - BLOOD CULTURE POSITIVE [None]
  - CARDIOMEGALY [None]
  - DRUG INEFFECTIVE [None]
  - DYSPNOEA [None]
  - DYSPNOEA EXERTIONAL [None]
  - ECONOMIC PROBLEM [None]
  - FATIGUE [None]
  - GASTROINTESTINAL HAEMORRHAGE [None]
  - HAEMATEMESIS [None]
  - IMPAIRED WORK ABILITY [None]
  - INSOMNIA [None]
  - MALLORY-WEISS SYNDROME [None]
  - MELAENA [None]
  - MIDDLE INSOMNIA [None]
  - MULTIPLE INJURIES [None]
  - NAUSEA [None]
  - OEDEMA [None]
  - ORTHOPNOEA [None]
  - PROCEDURAL COMPLICATION [None]
  - PULMONARY OEDEMA [None]
  - PYREXIA [None]
  - RENAL FAILURE [None]
  - STAPHYLOCOCCAL INFECTION [None]
  - SURGERY [None]
  - TACHYCARDIA [None]
  - UNEVALUABLE EVENT [None]
  - VENTRICULAR EXTRASYSTOLES [None]
  - VENTRICULAR TACHYCARDIA [None]
  - WHEEZING [None]
